FAERS Safety Report 9664167 (Version 1)
Quarter: 2013Q4

REPORT INFORMATION
  Report Type: Spontaneous
  Country: US (occurrence: US)
  Receive Date: 20131101
  Receipt Date: 20131101
  Transmission Date: 20140711
  Serious: Yes (Other)
  Sender: FDA-Public Use
  Company Number: US-MYLANLABS-2013S1023778

PATIENT
  Age: 84 Year
  Sex: Female

DRUGS (3)
  1. FENTANYL TRANSDERMAL SYSTEM [Suspect]
     Indication: PAIN
     Dosage: CHANGE PATCH EVERY 72 HOURS.
     Route: 062
     Dates: start: 20131005, end: 20131013
  2. FENTANYL TRANSDERMAL SYSTEM [Suspect]
     Indication: PAIN
     Dosage: CHANGE 2 PATCHES EVERY 72 HOURS.
     Route: 062
     Dates: start: 20131013
  3. HYDROCODONE/APAP [Suspect]
     Indication: PAIN
     Dosage: 5/500MG
     Route: 048
     Dates: start: 20131011

REACTIONS (4)
  - Overdose [Recovered/Resolved]
  - Lethargy [Recovered/Resolved]
  - Pain [Recovered/Resolved]
  - Incorrect drug administration duration [Recovered/Resolved]
